FAERS Safety Report 4461990-4 (Version None)
Quarter: 2004Q3

REPORT INFORMATION
  Report Type: 
  Country: None (occurrence: None)
  Receive Date: 20040923
  Receipt Date: 20040908
  Transmission Date: 20050211
  Serious: Yes (Other)
  Sender: FDA-Public Use
  Company Number: 2004-09-0402

PATIENT
  Age: 28 Year
  Sex: Female

DRUGS (1)
  1. CLARINASE (LORATADINE/PSEUDOEPHEDRINE) REPETABS [Suspect]
     Indication: CHRONIC SINUSITIS
     Dosage: BID ORAL
     Route: 048
     Dates: start: 20040712, end: 20040101

REACTIONS (7)
  - ANOREXIA [None]
  - ANXIETY [None]
  - FEELING ABNORMAL [None]
  - HALLUCINATION, AUDITORY [None]
  - HYPERTENSION [None]
  - INSOMNIA [None]
  - THIRST [None]
